FAERS Safety Report 6191835-6 (Version None)
Quarter: 2009Q2

REPORT INFORMATION
  Report Type: 
  Country: None (occurrence: None)
  Receive Date: 20090515
  Receipt Date: 20090508
  Transmission Date: 20091009
  Serious: Yes (Other)
  Sender: FDA-Public Use
  Company Number: ES-PFIZER INC-2009211433

PATIENT
  Age: 39 Year

DRUGS (1)
  1. PREVENCOR [Suspect]
     Indication: HYPERLIPIDAEMIA
     Dosage: 10 MG, UNK
     Route: 048
     Dates: start: 20080512, end: 20080812

REACTIONS (1)
  - ERECTILE DYSFUNCTION [None]
